FAERS Safety Report 8820182 (Version 1)
Quarter: 2012Q4

REPORT INFORMATION
  Report Type: 
  Country: JP (occurrence: JP)
  Receive Date: 20121002
  Receipt Date: 20121002
  Transmission Date: 20130627
  Serious: Yes (Other)
  Sender: FDA-Public Use
  Company Number: JP-009507513-2012SP034884

PATIENT
  Age: 84 Year
  Sex: Female
  Weight: 40 kg

DRUGS (6)
  1. ESLAX [Suspect]
     Indication: NEUROMUSCULAR BLOCKING THERAPY
     Dosage: 5 mg, ONCE
     Route: 042
  2. ESLAX [Suspect]
     Dosage: 30 mg, ONCE
     Route: 042
  3. FENTANYL [Concomitant]
     Indication: INDUCTION OF ANAESTHESIA
     Dosage: 50 ?g, UNK
  4. MIDAZENON [Concomitant]
     Indication: INDUCTION OF ANAESTHESIA
     Dosage: 3 mg, UNK
  5. KETAMINE HYDROCHLORIDE [Concomitant]
     Indication: INDUCTION OF ANAESTHESIA
     Dosage: 30 mg, UNK
  6. DOPAMINE HYDROCHLORIDE [Concomitant]
     Dosage: 5 Microgram per kilogram,min
     Route: 041

REACTIONS (1)
  - Cardiac arrest [Recovering/Resolving]
